FAERS Safety Report 7946494-6 (Version None)
Quarter: 2011Q4

REPORT INFORMATION
  Report Type: 
  Country: None (occurrence: None)
  Receive Date: 20111129
  Receipt Date: 20111117
  Transmission Date: 20120403
  Serious: Yes (Hospitalization)
  Sender: FDA-Public Use
  Company Number: US-ELI_LILLY_AND_COMPANY-US201101003510

PATIENT
  Sex: Female

DRUGS (20)
  1. POTASSIUM ACETATE [Concomitant]
     Indication: BLOOD POTASSIUM DECREASED
     Dosage: 20 MEQ, QD
  2. VITAMIN D [Concomitant]
  3. CEPHALEXIN [Concomitant]
     Dosage: 500 MG, EVERY 8 HRS
  4. TOPAMAX [Concomitant]
  5. RESTASIS [Concomitant]
  6. ORPHENADRINE CITRATE [Concomitant]
  7. SIMVASTATIN [Concomitant]
  8. CLARITIN [Concomitant]
  9. FORTEO [Suspect]
     Indication: OSTEOPOROSIS
     Dosage: 20 UG, QD
     Dates: start: 20101101
  10. FORTEO [Suspect]
     Dosage: 20 UG, QD
  11. LEVOTHYROXINE SODIUM [Concomitant]
  12. SINGULAIR [Concomitant]
  13. SPIRIVA [Concomitant]
  14. RISPERDAL [Concomitant]
  15. FENOFIBRATE [Concomitant]
  16. KLONOPIN [Concomitant]
  17. ARICEPT [Concomitant]
  18. LANSOPRAZOLE [Concomitant]
  19. HYDROCHLOROTHIAZIDE [Concomitant]
  20. EFFEXOR [Concomitant]

REACTIONS (6)
  - APPENDICITIS [None]
  - BLOOD PRESSURE ABNORMAL [None]
  - BLOOD POTASSIUM DECREASED [None]
  - COUGH [None]
  - NAUSEA [None]
  - DRUG DOSE OMISSION [None]
